FAERS Safety Report 7652132-2 (Version None)
Quarter: 2011Q3

REPORT INFORMATION
  Report Type: 
  Country: None (occurrence: None)
  Receive Date: 20110803
  Receipt Date: 20110722
  Transmission Date: 20111222
  Serious: Yes (Hospitalization)
  Sender: FDA-Public Use
  Company Number: FI-JNJFOC-20110708104

PATIENT
  Sex: Female

DRUGS (2)
  1. IMODIUM [Suspect]
     Route: 065
  2. IMODIUM [Suspect]
     Indication: DIARRHOEA
     Dosage: AT 19:30
     Route: 065
     Dates: start: 20110705, end: 20110705

REACTIONS (5)
  - PHARYNGEAL OEDEMA [None]
  - THROAT TIGHTNESS [None]
  - DYSPHONIA [None]
  - VOMITING [None]
  - URTICARIA [None]
